FAERS Safety Report 9917975 (Version 2)
Quarter: 2014Q1

REPORT INFORMATION
  Report Type: Report from Study
  Country: KR (occurrence: KR)
  Receive Date: 20140222
  Receipt Date: 20140222
  Transmission Date: 20141002
  Serious: Yes (Death, Other)
  Sender: FDA-Public Use
  Company Number: KR-ROCHE-631516

PATIENT
  Sex: 0

DRUGS (4)
  1. CAPECITABINE [Suspect]
     Indication: GASTRIC CANCER
     Dosage: ON DAYS 1-14 OF EVERY 3 WEEK-CYCLE
     Route: 048
  2. OXALIPLATIN [Suspect]
     Indication: GASTRIC CANCER
     Dosage: ON DAY 1
     Route: 042
  3. CETUXIMAB [Suspect]
     Indication: GASTRIC CANCER
     Dosage: ON DAY 1
     Route: 042
  4. CETUXIMAB [Suspect]
     Route: 042

REACTIONS (12)
  - Malignant neoplasm progression [Fatal]
  - Anaemia [Unknown]
  - Thrombocytopenia [Unknown]
  - Cerebrovascular accident [Unknown]
  - Tumour haemorrhage [Unknown]
  - Escherichia sepsis [Unknown]
  - Interstitial lung disease [Unknown]
  - Infusion related reaction [Unknown]
  - Vomiting [Unknown]
  - Diarrhoea [Unknown]
  - Palmar-plantar erythrodysaesthesia syndrome [Unknown]
  - Abdominal pain [Unknown]
